FAERS Safety Report 7517300-9 (Version None)
Quarter: 2011Q2

REPORT INFORMATION
  Report Type: 
  Country: None (occurrence: None)
  Receive Date: 20110601
  Receipt Date: 20110524
  Transmission Date: 20111010
  Serious: Yes (Hospitalization)
  Sender: FDA-Public Use
  Company Number: FR-PFIZER INC-2011105467

PATIENT
  Age: 42 Year
  Sex: Male

DRUGS (11)
  1. SOLU-MEDROL [Suspect]
     Indication: PRECURSOR T-LYMPHOBLASTIC LYMPHOMA/LEUKAEMIA
     Dosage: 90 MG, 1X/DAY, FROM DAY 1 TO 14
     Dates: start: 20101020, end: 20101102
  2. CERUBIDINE [Suspect]
     Indication: PRECURSOR T-LYMPHOBLASTIC LYMPHOMA/LEUKAEMIA
     Dosage: 90 MG, CYCLIC, ON DAYS  1, 2, 3, 15 AND 16
     Dates: start: 20101020, end: 20101104
  3. ACLOTINE [Concomitant]
     Dosage: 3 DF, UNK
     Dates: start: 20101106
  4. CYCLOPHOSPHAMIDE [Suspect]
     Indication: PRECURSOR T-LYMPHOBLASTIC LYMPHOMA/LEUKAEMIA
     Dosage: 1350 MG, CYCLIC, ON DAYS 1, 15 AND 16
     Route: 042
     Dates: start: 20101020, end: 20101104
  5. ACUPAN [Concomitant]
     Indication: HEADACHE
     Dosage: UNK
     Dates: start: 20101104
  6. CYTARABINE [Suspect]
     Indication: PRECURSOR T-LYMPHOBLASTIC LYMPHOMA/LEUKAEMIA
     Dosage: 40 MG/WEEK, ON DAYS 1 AND 8
     Dates: start: 20101020, end: 20101027
  7. METHOTREXATE SODIUM [Suspect]
     Indication: PRECURSOR T-LYMPHOBLASTIC LYMPHOMA/LEUKAEMIA
     Dosage: 15 MG/WEEK, ON DAYS 1 AND 8
     Dates: start: 20101020, end: 20101027
  8. KIDROLASE SPECIA [Suspect]
     Indication: PRECURSOR T-LYMPHOBLASTIC LYMPHOMA/LEUKAEMIA
     Dosage: 10800 IU, ON DAYS 8, 10 AND 12
     Route: 042
     Dates: start: 20101027, end: 20101031
  9. ONCOVIN [Suspect]
     Indication: PRECURSOR T-LYMPHOBLASTIC LYMPHOMA/LEUKAEMIA
     Dosage: 2 MG/WEEK, ON DAYS 1, 8 AND 15
     Dates: start: 20101020, end: 20101103
  10. ACLOTINE [Concomitant]
     Dosage: 3 DF, UNK
     Dates: start: 20101108
  11. ACLOTINE [Concomitant]
     Dosage: 3 DF, UNK
     Dates: start: 20101031

REACTIONS (1)
  - CEREBRAL VENOUS THROMBOSIS [None]
